FAERS Safety Report 4297204-8 (Version None)
Quarter: 2004Q1

REPORT INFORMATION
  Report Type: 
  Country: None (occurrence: None)
  Receive Date: 20040213
  Receipt Date: 20040130
  Transmission Date: 20041129
  Serious: Yes (Hospitalization, Other)
  Sender: FDA-Public Use
  Company Number: 200312049

PATIENT
  Age: 3 Year
  Sex: Female
  Weight: 16.2 kg

DRUGS (2)
  1. BOTOX [Suspect]
     Indication: CEREBRAL PALSY
     Dosage: 200 UNITS PRN; IM
     Route: 030
     Dates: start: 20020207
  2. TEGRETOL [Concomitant]

REACTIONS (3)
  - COMPLEX PARTIAL SEIZURES [None]
  - DRUG TOXICITY [None]
  - HEPATITIS [None]
